FAERS Safety Report 5334249-0 (Version None)
Quarter: 2007Q2

REPORT INFORMATION
  Report Type: 
  Country: None (occurrence: None)
  Receive Date: 20070523
  Receipt Date: 20070523
  Transmission Date: 20071010
  Serious: Yes (Other)
  Sender: FDA-Public Use
  Company Number: None

PATIENT
  Age: 21 Year
  Sex: Female
  Weight: 79.3795 kg

DRUGS (1)
  1. DEPO-PROVERA [Suspect]
     Indication: MENORRHAGIA
     Dosage: 1 SHOT EVERY 3 MONTHS IM
     Route: 030

REACTIONS (4)
  - CONDITION AGGRAVATED [None]
  - DEPRESSION [None]
  - MENORRHAGIA [None]
  - SUICIDAL IDEATION [None]
